FAERS Safety Report 9688911 (Version 7)
Quarter: 2016Q1

REPORT INFORMATION
  Report Type: Report from Study
  Country: CA (occurrence: CA)
  Receive Date: 20131114
  Receipt Date: 20160131
  Transmission Date: 20160526
  Serious: Yes (Death, Hospitalization, Other)
  Sender: FDA-Public Use
  Company Number: PHHY2012CA070349

PATIENT
  Age: 72 Year
  Sex: Female

DRUGS (4)
  1. SANDOSTATIN [Suspect]
     Active Substance: OCTREOTIDE ACETATE
     Indication: ANGIODYSPLASIA
     Dosage: UNK UKN, BID
     Route: 058
     Dates: start: 20120801, end: 20120830
  2. SANDOSTATIN LAR DEPOT [Suspect]
     Active Substance: OCTREOTIDE ACETATE
     Indication: ANGIODYSPLASIA
     Dosage: 20 MG, EVERY FOUR WEEKS
     Route: 030
     Dates: start: 20120809
  3. COVERSYL//PERINDOPRIL ERBUMINE [Concomitant]
     Active Substance: PERINDOPRIL
     Indication: PRODUCT USED FOR UNKNOWN INDICATION
     Dosage: 8 MG
     Route: 065
  4. COVERSYL//PERINDOPRIL ERBUMINE [Concomitant]
     Active Substance: PERINDOPRIL
     Dosage: 6 MG
     Dates: start: 20131109

REACTIONS (12)
  - Dizziness [Unknown]
  - Haemoglobin decreased [Unknown]
  - Fatigue [Unknown]
  - Product use issue [Unknown]
  - Pneumonia [Not Recovered/Not Resolved]
  - Hypotension [Unknown]
  - Death [Fatal]
  - Injection site pain [Unknown]
  - Faeces discoloured [Unknown]
  - Blood pressure increased [Unknown]
  - Haematochezia [Unknown]
  - Alopecia [Unknown]

NARRATIVE: CASE EVENT DATE: 20160117
